FAERS Safety Report 7277210-1 (Version None)
Quarter: 2011Q1

REPORT INFORMATION
  Report Type: 
  Country: None (occurrence: None)
  Receive Date: 20110202
  Receipt Date: 20110202
  Transmission Date: 20110831
  Serious: Yes (Other)
  Sender: FDA-Public Use
  Company Number: None

PATIENT
  Sex: Male
  Weight: 72.8477 kg

DRUGS (13)
  1. AMPYRA [Suspect]
     Indication: MULTIPLE SCLEROSIS
     Dosage: 10 MG BID PO
     Route: 048
     Dates: start: 20100907, end: 20101226
  2. MODAFINIL [Concomitant]
  3. ASPIRIN [Concomitant]
  4. CYANOCOBALAMIN [Concomitant]
  5. DANTROLENE SODIUM [Concomitant]
  6. DOCUSATE [Concomitant]
  7. MYCOPHENOLATE [Concomitant]
  8. ZANAFLEX [Concomitant]
  9. WARFARIN [Concomitant]
  10. GABAPENTIN [Concomitant]
  11. SIMVASTATIN [Concomitant]
  12. BACLOFEN [Concomitant]
  13. MULTI-VITAMIN [Concomitant]

REACTIONS (1)
  - WEIGHT DECREASED [None]
